FAERS Safety Report 23921528 (Version 1)
Quarter: 2024Q2

REPORT INFORMATION
  Report Type: Spontaneous
  Country: US (occurrence: US)
  Receive Date: 20240530
  Receipt Date: 20240530
  Transmission Date: 20240716
  Serious: Yes (Hospitalization)
  Sender: FDA-Public Use
  Company Number: US-Kiniksa Pharmaceuticals Ltd.-2024KPU000828

PATIENT
  Age: 22 Year
  Sex: Male

DRUGS (3)
  1. ARCALYST [Suspect]
     Active Substance: RILONACEPT
     Indication: Pericarditis
     Route: 058
     Dates: start: 2021
  2. ARCALYST [Suspect]
     Active Substance: RILONACEPT
     Route: 058
  3. ARCALYST [Suspect]
     Active Substance: RILONACEPT
     Route: 058
     Dates: start: 202312

REACTIONS (4)
  - Pericarditis [Unknown]
  - Pericarditis [Unknown]
  - C-reactive protein increased [Unknown]
  - Illness [Unknown]
